FAERS Safety Report 6385596-5 (Version None)
Quarter: 2009Q4

REPORT INFORMATION
  Report Type: 
  Country: None (occurrence: None)
  Receive Date: 20091002
  Receipt Date: 20090922
  Transmission Date: 20100525
  Serious: Yes (Death)
  Sender: FDA-Public Use
  Company Number: KR-PFIZER INC-2009272054

PATIENT
  Age: 56 Year

DRUGS (9)
  1. VORICONAZOLE [Suspect]
     Indication: ASPERGILLOSIS
     Dosage: 200 MG, 2X/DAY
     Route: 048
     Dates: start: 20081107, end: 20081112
  2. MIDAZOLAM [Concomitant]
     Indication: SEDATION
     Dosage: UNK
     Route: 041
     Dates: start: 20081101, end: 20081112
  3. GANCICLOVIR [Concomitant]
     Indication: PNEUMONIA CYTOMEGALOVIRAL
     Dosage: 375 MG, 1X/DAY
     Route: 041
     Dates: start: 20081031, end: 20081111
  4. COLISTIN [Concomitant]
     Indication: PNEUMONIA
     Dosage: 190 MG, ALTERNATE DAY
     Route: 041
     Dates: start: 20081105, end: 20081111
  5. VANCOMYCIN [Concomitant]
     Indication: PNEUMONIA
     Dosage: 500 MG, 2X/DAY
     Route: 041
     Dates: start: 20081029, end: 20081112
  6. FUTHAN [Concomitant]
     Indication: PROPHYLAXIS
     Dosage: 200 MG, 1X/DAY
     Route: 042
     Dates: start: 20081101, end: 20081112
  7. CELLCEPT [Concomitant]
     Indication: IMMUNOSUPPRESSION
     Dosage: 375 MG, 2X/DAY
     Route: 048
     Dates: start: 20080925, end: 20081109
  8. PREDNISOLONE [Concomitant]
     Indication: IMMUNOSUPPRESSION
     Dosage: 15 MG, 1X/DAY
     Route: 048
     Dates: start: 20080929, end: 20081112
  9. PANTOLOC ^BYK MADAUS^ [Concomitant]
     Indication: GASTRIC DISORDER
     Dosage: 40 MG, 1X/DAY
     Route: 041
     Dates: start: 20081101, end: 20081112

REACTIONS (1)
  - DEATH [None]
